FAERS Safety Report 9415561 (Version 3)
Quarter: 2013Q3

REPORT INFORMATION
  Report Type: Spontaneous
  Country: US (occurrence: US)
  Receive Date: 20130723
  Receipt Date: 20130821
  Transmission Date: 20140515
  Serious: Yes (Other)
  Sender: FDA-Public Use
  Company Number: US-BAYER-2013-088742

PATIENT
  Age: 34 Year
  Sex: Female
  Weight: 78.91 kg

DRUGS (6)
  1. MIRENA [Suspect]
     Indication: CONTRACEPTION
     Dosage: 20 MCG/24HR, CONT
     Route: 015
     Dates: start: 20111018, end: 20130711
  2. LEVOXYL [Concomitant]
     Dosage: 88 UNK, UNK
  3. METFORMIN [Concomitant]
     Dosage: 500 MG, QD
  4. MV [Concomitant]
  5. ZYRTEC [Concomitant]
  6. IRON [Concomitant]

REACTIONS (4)
  - Pregnancy with contraceptive device [Not Recovered/Not Resolved]
  - Drug ineffective [None]
  - Abortion spontaneous [None]
  - Genital haemorrhage [None]
